FAERS Safety Report 6287704-3 (Version None)
Quarter: 2009Q3

REPORT INFORMATION
  Report Type: 
  Country: None (occurrence: None)
  Receive Date: 20090727
  Receipt Date: 20090727
  Transmission Date: 20100115
  Serious: No
  Sender: FDA-Public Use
  Company Number: None

PATIENT

DRUGS (2)
  1. BENADRYL [Suspect]
     Indication: HYPERSENSITIVITY
  2. SUDAFED 12 HOUR [Suspect]

REACTIONS (1)
  - NO ADVERSE EVENT [None]
